FAERS Safety Report 7492980-5 (Version None)
Quarter: 2011Q2

REPORT INFORMATION
  Report Type: 
  Country: None (occurrence: None)
  Receive Date: 20110511
  Receipt Date: 20110506
  Transmission Date: 20111010
  Serious: Yes (Other)
  Sender: FDA-Public Use
  Company Number: B0717520A

PATIENT
  Sex: Female

DRUGS (5)
  1. LAMIVUDINE [Suspect]
     Indication: HIV INFECTION
  2. ZIDOVUDINE [Suspect]
     Indication: HIV INFECTION
  3. BACILLUS CALMETTE-GUERIN (BACILLUS CALMETTE-GUERIN) [Suspect]
  4. ANTIBACTERIAL [Concomitant]
  5. LOPINAVIR AND RITONAVIR [Suspect]

REACTIONS (3)
  - BOVINE TUBERCULOSIS [None]
  - LYMPHADENITIS [None]
  - IMMUNE RECONSTITUTION SYNDROME [None]
